FAERS Safety Report 5754633-0 (Version None)
Quarter: 2008Q2

REPORT INFORMATION
  Report Type: 
  Country: None (occurrence: None)
  Receive Date: 20080530
  Receipt Date: 20080520
  Transmission Date: 20081010
  Serious: Yes (Other)
  Sender: FDA-Public Use
  Company Number: US-PFIZER INC-2008043447

PATIENT
  Sex: Male
  Weight: 90.7 kg

DRUGS (7)
  1. LYRICA [Suspect]
     Indication: DIABETIC NEUROPATHY
  2. LYRICA [Suspect]
     Indication: PROCEDURAL PAIN
  3. LYRICA [Suspect]
     Indication: HYPOAESTHESIA
  4. INSULIN [Concomitant]
  5. PLAVIX [Concomitant]
  6. ACETYLSALICYLIC ACID SRT [Concomitant]
  7. CRESTOR [Concomitant]

REACTIONS (5)
  - BURNS THIRD DEGREE [None]
  - DRUG INEFFECTIVE [None]
  - FALL [None]
  - OEDEMA PERIPHERAL [None]
  - PAIN IN EXTREMITY [None]
